FAERS Safety Report 5091348-9 (Version None)
Quarter: 2006Q3

REPORT INFORMATION
  Report Type: 
  Country: None (occurrence: None)
  Receive Date: 20060824
  Receipt Date: 20060616
  Transmission Date: 20061208
  Serious: Yes (Hospitalization)
  Sender: FDA-Public Use
  Company Number: 2006077484

PATIENT
  Age: 40 Year
  Sex: Female
  Weight: 60 kg

DRUGS (2)
  1. SUTENT [Suspect]
     Indication: GASTROINTESTINAL STROMAL TUMOUR
     Dosage: 50 MG (50 MG, 1 IN 1), ORAL
     Route: 048
     Dates: start: 20051116
  2. AMLODIPINE [Concomitant]

REACTIONS (5)
  - ASCITES [None]
  - AZOTAEMIA [None]
  - BLOOD PRESSURE INCREASED [None]
  - ORAL INTAKE REDUCED [None]
  - RESPIRATORY RATE INCREASED [None]
